FAERS Safety Report 7999315-X (Version None)
Quarter: 2011Q4

REPORT INFORMATION
  Report Type: 
  Country: None (occurrence: None)
  Receive Date: 20111221
  Receipt Date: 20111209
  Transmission Date: 20120403
  Serious: Yes (Death)
  Sender: FDA-Public Use
  Company Number: IT-CELGENEUS-083-21880-11080361

PATIENT
  Sex: Female
  Weight: 68 kg

DRUGS (2)
  1. REVLIMID [Suspect]
     Route: 048
     Dates: start: 20101211, end: 20101231
  2. CYTARABINE [Suspect]
     Route: 065
     Dates: start: 20101211, end: 20101224

REACTIONS (1)
  - CEREBRAL HAEMORRHAGE [None]
